FAERS Safety Report 7280825-8 (Version None)
Quarter: 2011Q1

REPORT INFORMATION
  Report Type: 
  Country: None (occurrence: None)
  Receive Date: 20110203
  Receipt Date: 20110203
  Transmission Date: 20110831
  Serious: Yes (Death, Hospitalization)
  Sender: FDA-Public Use
  Company Number: None

PATIENT
  Sex: Male
  Weight: 85 kg

DRUGS (2)
  1. ETOPOSIDE [Suspect]
     Dosage: 202 MG
     Dates: end: 20110124
  2. CARBOPLATIN [Suspect]
     Dosage: 620 MG
     Dates: end: 20110124

REACTIONS (9)
  - HEPATIC HAEMATOMA [None]
  - HYPOVOLAEMIC SHOCK [None]
  - PERITONEAL HAEMORRHAGE [None]
  - SPLENIC HAEMORRHAGE [None]
  - LIVER CARCINOMA RUPTURED [None]
  - HEPATIC LESION [None]
  - HEPATOMEGALY [None]
  - CARDIO-RESPIRATORY ARREST [None]
  - METASTASES TO LIVER [None]
